FAERS Safety Report 6401532-7 (Version None)
Quarter: 2009Q4

REPORT INFORMATION
  Report Type: 
  Country: None (occurrence: None)
  Receive Date: 20091013
  Receipt Date: 20091013
  Transmission Date: 20100525
  Serious: Yes (Other)
  Sender: FDA-Public Use
  Company Number: None

PATIENT
  Sex: Female
  Weight: 73.4827 kg

DRUGS (1)
  1. GEODON [Suspect]
     Indication: DRUG USE FOR UNKNOWN INDICATION
     Dosage: PO ONE DAY ON LARGER DOSE
     Route: 048

REACTIONS (9)
  - ANAEMIA [None]
  - BLOOD MAGNESIUM DECREASED [None]
  - DRUG DISPENSING ERROR [None]
  - DYSPNOEA [None]
  - FEAR OF DEATH [None]
  - HEART RATE INCREASED [None]
  - HYPERTENSION [None]
  - INCORRECT DOSE ADMINISTERED [None]
  - INTERCEPTED DRUG DISPENSING ERROR [None]
